FAERS Safety Report 11766881 (Version 1)
Quarter: 2015Q4

REPORT INFORMATION
  Report Type: Spontaneous
  Country: US (occurrence: US)
  Receive Date: 20151123
  Receipt Date: 20151123
  Transmission Date: 20160304
  Serious: No
  Sender: FDA-Public Use
  Company Number: US-PAR PHARMACEUTICAL, INC-2015SCPR013981

PATIENT

DRUGS (2)
  1. ACCOLATE [Suspect]
     Active Substance: ZAFIRLUKAST
     Dosage: 1 DF, BID
     Route: 048
     Dates: start: 201502, end: 201504
  2. ACCOLATE [Suspect]
     Active Substance: ZAFIRLUKAST
     Indication: ASTHMA
     Dosage: 1 DF, BID
     Route: 048
     Dates: end: 201502

REACTIONS (7)
  - Asthma [Recovered/Resolved]
  - Drug dose omission [Unknown]
  - Psychomotor hyperactivity [Recovered/Resolved]
  - Hypermetabolism [Recovered/Resolved]
  - Insomnia [Recovered/Resolved]
  - Condition aggravated [Recovered/Resolved]
  - Anxiety [Recovered/Resolved]

NARRATIVE: CASE EVENT DATE: 201502
